FAERS Safety Report 23838367 (Version 1)
Quarter: 2024Q2

REPORT INFORMATION
  Report Type: Spontaneous
  Country: US (occurrence: US)
  Receive Date: 20240509
  Receipt Date: 20240509
  Transmission Date: 20240716
  Serious: No
  Sender: FDA-Public Use
  Company Number: US-INTRA-CELLULAR THERAPIES, INC.-2024ICT00056

PATIENT
  Age: 25 Year
  Sex: Female

DRUGS (2)
  1. CAPLYTA [Suspect]
     Active Substance: LUMATEPERONE
     Indication: Bipolar disorder
     Dosage: 42 MG
  2. LITHIUM [Concomitant]
     Active Substance: LITHIUM
     Dosage: 450 UNK, 2X/DAY

REACTIONS (1)
  - Diarrhoea [Unknown]
